FAERS Safety Report 23034665 (Version 1)
Quarter: 2023Q4

REPORT INFORMATION
  Report Type: Spontaneous
  Country: US (occurrence: US)
  Receive Date: 20231005
  Receipt Date: 20231005
  Transmission Date: 20240110
  Serious: No
  Sender: FDA-Public Use
  Company Number: US-KARYOPHARM-2023KPT001901

PATIENT

DRUGS (16)
  1. XPOVIO [Suspect]
     Active Substance: SELINEXOR
     Indication: Plasma cell myeloma
     Dosage: 80 MG, WEEKLY
     Route: 048
     Dates: start: 20230731
  2. ACYCLOVIR SODIUM [Concomitant]
     Active Substance: ACYCLOVIR SODIUM
  3. BACTRIM [Concomitant]
     Active Substance: SULFAMETHOXAZOLE\TRIMETHOPRIM
  4. CHLORTHALIDONE [Concomitant]
     Active Substance: CHLORTHALIDONE
  5. DEXAMETHASONE [Concomitant]
     Active Substance: DEXAMETHASONE
  6. JARDIANCE [Concomitant]
     Active Substance: EMPAGLIFLOZIN
  7. LEVEMIR [Concomitant]
     Active Substance: INSULIN DETEMIR
  8. METOPROLOL [Concomitant]
     Active Substance: METOPROLOL
  9. NOVOLOG [Concomitant]
     Active Substance: INSULIN ASPART
  10. PANTOPRAZOLE [Concomitant]
     Active Substance: PANTOPRAZOLE
  11. PREDNISONE [Concomitant]
     Active Substance: PREDNISONE
  12. SERTRALINE [Concomitant]
     Active Substance: SERTRALINE HYDROCHLORIDE
  13. VALSARTAN [Concomitant]
     Active Substance: VALSARTAN
  14. VELCADE [Concomitant]
     Active Substance: BORTEZOMIB
  15. XARELTO [Concomitant]
     Active Substance: RIVAROXABAN
  16. ZOFRAN [Concomitant]
     Active Substance: ONDANSETRON HYDROCHLORIDE

REACTIONS (2)
  - Nausea [Unknown]
  - Diarrhoea [Unknown]

NARRATIVE: CASE EVENT DATE: 20230101
